FAERS Safety Report 5601493-4 (Version None)
Quarter: 2008Q1

REPORT INFORMATION
  Report Type: 
  Country: None (occurrence: None)
  Receive Date: 20080124
  Receipt Date: 20070403
  Transmission Date: 20080703
  Serious: No
  Sender: FDA-Public Use
  Company Number: US-BAYER-200614887BCC

PATIENT
  Age: 55 Year
  Sex: Female
  Weight: 74 kg

DRUGS (7)
  1. ALEVE COLD AND SINUS [Suspect]
     Indication: ALLERGIC SINUSITIS
     Dosage: TOTAL DAILY DOSE: 220 MG  UNIT DOSE: 220 MG
     Route: 048
     Dates: start: 20040101, end: 20060101
  2. ACETAMINOPHEN [Suspect]
     Indication: DRUG USE FOR UNKNOWN INDICATION
     Route: 048
  3. ADVIL COLD AND SINUS [Suspect]
  4. PROTONIX [Concomitant]
     Indication: GASTROOESOPHAGEAL REFLUX DISEASE
  5. TOPROL-XL [Concomitant]
     Indication: HYPERTENSION
     Dosage: TOTAL DAILY DOSE: 200 MG  UNIT DOSE: 100 MG
  6. SYNTHROID [Concomitant]
     Indication: THYROID DISORDER
  7. EXTRA STRENGTH TYLENOL [Concomitant]
     Dosage: TOTAL DAILY DOSE: 500 MG  UNIT DOSE: 500 MG

REACTIONS (1)
  - HYPERTENSION [None]
